FAERS Safety Report 19695507 (Version 2)
Quarter: 2021Q3

REPORT INFORMATION
  Report Type: Report from Study
  Country: IE (occurrence: IE)
  Receive Date: 20210813
  Receipt Date: 20210929
  Transmission Date: 20211014
  Serious: Yes (Hospitalization, Other)
  Sender: FDA-Public Use
  Company Number: NVSC2021IE052231

PATIENT
  Age: 60 Year
  Sex: Female
  Weight: 53.5 kg

DRUGS (7)
  1. ALPELISIB [Suspect]
     Active Substance: ALPELISIB
     Dosage: 250 MG, QD
     Route: 048
     Dates: start: 20210308
  2. ALPELISIB [Suspect]
     Active Substance: ALPELISIB
     Dosage: 300 MG, QD
     Route: 048
     Dates: start: 20210217, end: 20210226
  3. CREON [Concomitant]
     Active Substance: PANCRELIPASE AMYLASE\PANCRELIPASE LIPASE\PANCRELIPASE PROTEASE
     Indication: PRODUCT USED FOR UNKNOWN INDICATION
     Dosage: UNK
     Route: 065
  4. CALCICHEW [Concomitant]
     Active Substance: CALCIUM CARBONATE
     Indication: PRODUCT USED FOR UNKNOWN INDICATION
     Dosage: UNK
     Route: 065
  5. ALPELISIB [Suspect]
     Active Substance: ALPELISIB
     Dosage: 200 MG, QD
     Route: 048
     Dates: start: 20210416, end: 20210727
  6. ALPELISIB [Suspect]
     Active Substance: ALPELISIB
     Indication: CHOLANGIOCARCINOMA
     Dosage: 300 MG, QD
     Route: 048
     Dates: start: 20210217, end: 20210226
  7. APIXABAN [Suspect]
     Active Substance: APIXABAN
     Indication: PULMONARY EMBOLISM
     Dosage: 2.5 MG, TID
     Route: 065
     Dates: start: 20190705, end: 20210728

REACTIONS (13)
  - Lethargy [Unknown]
  - Dysphagia [Not Recovered/Not Resolved]
  - Colitis [Recovered/Resolved]
  - Diarrhoea [Recovered/Resolved]
  - Rash [Not Recovered/Not Resolved]
  - Asthenia [Unknown]
  - Colitis ulcerative [Unknown]
  - Mucosal inflammation [Not Recovered/Not Resolved]
  - Dehydration [Unknown]
  - Pyrexia [Recovered/Resolved]
  - Abdominal pain [Unknown]
  - Rectal haemorrhage [Recovered/Resolved]
  - Haemorrhoids [Unknown]

NARRATIVE: CASE EVENT DATE: 20210226
